FAERS Safety Report 20636196 (Version 3)
Quarter: 2022Q3

REPORT INFORMATION
  Report Type: Spontaneous
  Country: JP (occurrence: JP)
  Receive Date: 20220325
  Receipt Date: 20220809
  Transmission Date: 20221026
  Serious: No
  Sender: FDA-Public Use
  Company Number: JP-GLAXOSMITHKLINE-JP2022JPN053040

PATIENT

DRUGS (3)
  1. SOTROVIMAB [Suspect]
     Active Substance: SOTROVIMAB
     Indication: COVID-19
     Dosage: 500 MG/DAY
     Route: 041
     Dates: start: 20220317, end: 20220317
  2. BETAMETHASONE [Suspect]
     Active Substance: BETAMETHASONE
     Indication: Neonatal respiratory distress syndrome prophylaxis
     Dosage: 12 MG/DAY
     Route: 030
     Dates: start: 20220317, end: 20220318
  3. RITODRINE [Suspect]
     Active Substance: RITODRINE
     Indication: Premature labour
     Dosage: 200 MG/DAY
     Route: 041
     Dates: start: 20220317, end: 20220321

REACTIONS (2)
  - Exposure during pregnancy [Unknown]
  - Live birth [Unknown]
